FAERS Safety Report 8352011-1 (Version None)
Quarter: 2012Q2

REPORT INFORMATION
  Report Type: 
  Country: None (occurrence: None)
  Receive Date: 20120511
  Receipt Date: 20120503
  Transmission Date: 20120825
  Serious: Yes (Hospitalization)
  Sender: FDA-Public Use
  Company Number: US-BAYER-2011-111082

PATIENT
  Age: 40 Year
  Sex: Female
  Weight: 97.959 kg

DRUGS (3)
  1. VICODIN [Concomitant]
     Dosage: UNK
     Dates: start: 20090701
  2. YASMIN [Suspect]
     Indication: OVARIAN CYST
     Dosage: UNK
     Route: 048
     Dates: start: 20060101, end: 20060724
  3. IBUPROFEN (ADVIL) [Concomitant]
     Indication: PAIN

REACTIONS (6)
  - DEEP VEIN THROMBOSIS [None]
  - PAIN [None]
  - ANXIETY [None]
  - INJURY [None]
  - GENERAL PHYSICAL HEALTH DETERIORATION [None]
  - EMOTIONAL DISTRESS [None]
